FAERS Safety Report 8802258 (Version 1)
Quarter: 2012Q4

REPORT INFORMATION
  Report Type: 
  Country: IL (occurrence: IL)
  Receive Date: 20120921
  Receipt Date: 20120921
  Transmission Date: 20130627
  Serious: Yes (Hospitalization, Other)
  Sender: FDA-Public Use
  Company Number: PHHO2011IL01596

PATIENT
  Age: 55 Year
  Sex: Male
  Weight: 96 kg

DRUGS (13)
  1. BLINDED ENALAPRIL [Suspect]
     Indication: CARDIAC FAILURE CHRONIC
     Dosage: Double Blind
     Route: 048
     Dates: start: 20101109, end: 20111215
  2. BLINDED LCZ696 [Suspect]
     Indication: CARDIAC FAILURE CHRONIC
     Dosage: Double Blind
     Route: 048
     Dates: start: 20101109, end: 20111215
  3. BLINDED NO TREATMENT RECEIVED [Suspect]
     Indication: CARDIAC FAILURE CHRONIC
     Dosage: Double Blind
     Route: 048
     Dates: start: 20101109, end: 20111215
  4. FUSID [Concomitant]
     Indication: CARDIAC FAILURE CHRONIC
     Dosage: 40 mg, BID
     Route: 048
     Dates: start: 20080806
  5. FUSID [Concomitant]
     Dosage: 80 mg, UNK
     Route: 048
     Dates: start: 201203
  6. MONONIT [Concomitant]
     Indication: MYOCARDIAL ISCHAEMIA
     Dosage: 50 mg, QD
     Route: 048
     Dates: start: 200909
  7. CARDILOC [Concomitant]
     Indication: CARDIAC FAILURE CONGESTIVE
     Dosage: 5 mg, UNK
     Route: 048
     Dates: start: 201203
  8. ASPIRIN [Concomitant]
     Indication: MYOCARDIAL ISCHAEMIA
     Dosage: 100 mg, QD
     Route: 048
     Dates: start: 20080806
  9. MONOCORD [Concomitant]
     Indication: CARDIAC FAILURE CHRONIC
  10. ALDACTONE [Concomitant]
     Indication: CARDIAC FAILURE CONGESTIVE
     Dosage: 25 mg, QD
     Dates: start: 20080806
  11. ALDACTONE [Concomitant]
     Dosage: 50 mg, UNK
     Route: 048
     Dates: start: 201203
  12. METFORMIN [Concomitant]
     Indication: DIABETES MELLITUS
     Dosage: 850 mg, UNK
     Route: 048
     Dates: start: 200909
  13. JANUMET [Concomitant]
     Indication: TYPE 2 DIABETES MELLITUS

REACTIONS (5)
  - Cardiac failure chronic [Recovered/Resolved]
  - Ventricular tachycardia [Recovering/Resolving]
  - Intermittent claudication [Not Recovered/Not Resolved]
  - Squamous cell carcinoma of lung [Not Recovered/Not Resolved]
  - Disease progression [Recovered/Resolved]
